FAERS Safety Report 9012060 (Version 1)
Quarter: 2012Q4

REPORT INFORMATION
  Report Type: Spontaneous
  Country: DK (occurrence: None)
  Receive Date: 20121228
  Receipt Date: 20121228
  Transmission Date: 20130627
  Serious: Yes (Other)
  Sender: FDA-Public Use
  Company Number: 2012MA014303

PATIENT
  Age: 19 Year
  Sex: Male

DRUGS (1)
  1. CITALOPRAM HYDROBROMIDE TABLETS, 40 MG (PUREPAC) (CITALOPRAM HYDROBROMIDE) [Suspect]

REACTIONS (2)
  - Mental disorder [None]
  - Obsessive-compulsive disorder [None]
